FAERS Safety Report 4276570-3 (Version None)
Quarter: 2004Q1

REPORT INFORMATION
  Report Type: 
  Country: None (occurrence: None)
  Receive Date: 20040120
  Receipt Date: 20040107
  Transmission Date: 20041129
  Serious: No
  Sender: FDA-Public Use
  Company Number: 2004001388

PATIENT
  Age: 81 Year
  Sex: Female
  Weight: 72.5755 kg

DRUGS (6)
  1. BENADRYL [Suspect]
     Indication: COUGH
     Dosage: ONCE, ORAL
     Route: 048
     Dates: start: 20030513, end: 20030513
  2. NIFEDIPINE [Concomitant]
     Indication: DYSPHAGIA
     Dosage: ONCE, ORAL
     Route: 048
     Dates: start: 20030513, end: 20030513
  3. LOSARTAN POTASSIUM (LOSARTAN POTSSIUM) [Concomitant]
  4. WARFARIN SODIUM [Concomitant]
  5. ESTROPIPATE [Concomitant]
  6. TOCOPHEROL CONCENTRATE CAP [Concomitant]

REACTIONS (4)
  - DYSPHAGIA [None]
  - DYSPNOEA [None]
  - OROPHARYNGEAL SWELLING [None]
  - SWELLING FACE [None]
